FAERS Safety Report 23986828 (Version 6)
Quarter: 2025Q4

REPORT INFORMATION
  Report Type: Report from Study
  Country: US (occurrence: US)
  Receive Date: 20240618
  Receipt Date: 20251224
  Transmission Date: 20260118
  Serious: No
  Sender: PFIZER
  Company Number: US-PFIZER INC-PV202400078656

PATIENT
  Age: 67 Year
  Sex: Female
  Weight: 68.98 kg

DRUGS (6)
  1. IBRANCE [Suspect]
     Active Substance: PALBOCICLIB
     Indication: Breast cancer metastatic
     Dosage: 75 MG, CYCLIC (TAKE 1 TABLET WITH FOOD DAILY, ON DAYS 1-14 EVERY 28 DAYS/SHOULD BE TAKEN WITH FOOD)
     Route: 048
  2. IBRANCE [Suspect]
     Active Substance: PALBOCICLIB
     Indication: Gastrooesophageal reflux disease
     Dosage: 75 MG, CYCLIC (14 DAYS ON, 14 DAYS OFF)
     Route: 048
  3. IBRANCE [Suspect]
     Active Substance: PALBOCICLIB
     Indication: Anticoagulant therapy
     Dosage: 75 MG, CYCLIC (DAILY FOR 14 DAYS)
     Route: 048
  4. IBRANCE [Suspect]
     Active Substance: PALBOCICLIB
     Dosage: 75 MG, CYCLIC (DAILY FOR 14 DAYS)
     Route: 048
  5. IBRANCE [Suspect]
     Active Substance: PALBOCICLIB
     Dosage: 75 MG, CYCLIC (TAKE 1 TABLET WITH FOOD DAILY ON DAYS 1-14 EVERY 28 DAYS)
     Route: 048
  6. IBRANCE [Suspect]
     Active Substance: PALBOCICLIB
     Dosage: 75 MG, CYCLIC (DAILY FOR DAYS 1-14 OF 28 DAY CYCLE)
     Route: 048
     Dates: start: 20251023

REACTIONS (2)
  - Full blood count decreased [Unknown]
  - Off label use [Unknown]
